FAERS Safety Report 13949882 (Version 2)
Quarter: 2017Q4

REPORT INFORMATION
  Report Type: Report from Study
  Country: US (occurrence: US)
  Receive Date: 20170908
  Receipt Date: 20171016
  Transmission Date: 20180320
  Serious: Yes (Hospitalization)
  Sender: FDA-Public Use
  Company Number: US-VERTEX PHARMACEUTICALS-2017-004538

PATIENT
  Age: 19 Year
  Sex: Male
  Weight: 65 kg

DRUGS (16)
  1. PERIACTIN [Concomitant]
     Active Substance: CYPROHEPTADINE HYDROCHLORIDE
     Dosage: 4 MG, TID
     Route: 048
  2. MIRALAX [Concomitant]
     Active Substance: POLYETHYLENE GLYCOL 3350
     Indication: CONSTIPATION
     Dosage: 17 G, PRN
  3. CAYSTON [Concomitant]
     Active Substance: AZTREONAM
     Dosage: 75 MG, TID
  4. NOVOLOG [Concomitant]
     Active Substance: INSULIN ASPART
     Dosage: 100 UT/ ML
     Route: 058
  5. PULMOZYME [Concomitant]
     Active Substance: DORNASE ALFA
     Indication: INFECTIVE PULMONARY EXACERBATION OF CYSTIC FIBROSIS
  6. MVW [Concomitant]
     Dosage: 300 DF, BID
  7. PERIACTIN [Concomitant]
     Active Substance: CYPROHEPTADINE HYDROCHLORIDE
     Indication: WEIGHT DECREASED
     Dosage: UNK, BID
  8. CHOLECALCIFEROL [Concomitant]
     Active Substance: CHOLECALCIFEROL
     Dosage: 300 UT, BID
     Route: 048
  9. PROAIR HFA [Concomitant]
     Active Substance: ALBUTEROL SULFATE
     Dosage: 2 PUFFS, 4 TIMES A DAY
  10. CREON [Concomitant]
     Active Substance: PANCRELIPASE AMYLASE\PANCRELIPASE LIPASE\PANCRELIPASE PROTEASE
     Indication: PANCREATIC FAILURE
     Dosage: 24 ENZYMES (5 WITH MEALS AND 3 WITH MEALS)
  11. PRILOSEC [Concomitant]
     Active Substance: OMEPRAZOLE MAGNESIUM
     Indication: GASTROOESOPHAGEAL REFLUX DISEASE
     Dosage: 40 MG, QD
     Route: 048
  12. ORKAMBI [Suspect]
     Active Substance: IVACAFTOR\LUMACAFTOR
     Indication: CYSTIC FIBROSIS
     Dosage: 2 DF (200/125MG EACH), BID
     Route: 048
     Dates: start: 20160127
  13. MVW [Concomitant]
     Dosage: 1 DF, BID
     Route: 048
  14. CYPROHEPTADINE. [Concomitant]
     Active Substance: CYPROHEPTADINE
     Dosage: 4 MG, BID
  15. CULTURELLE [Concomitant]
     Active Substance: LACTOBACILLUS RHAMNOSUS
     Indication: PROPHYLAXIS AGAINST DIARRHOEA
  16. SYNTHROID [Concomitant]
     Active Substance: LEVOTHYROXINE SODIUM
     Indication: HYPOTHYROIDISM
     Dosage: 0.75 MG, QD
     Route: 048

REACTIONS (3)
  - Infective pulmonary exacerbation of cystic fibrosis [Recovering/Resolving]
  - Pneumonia pseudomonal [Unknown]
  - Acute kidney injury [Recovered/Resolved]

NARRATIVE: CASE EVENT DATE: 20170102
